FAERS Safety Report 5658006-0 (Version None)
Quarter: 2008Q1

REPORT INFORMATION
  Report Type: 
  Country: None (occurrence: None)
  Receive Date: 20080306
  Receipt Date: 20080218
  Transmission Date: 20080703
  Serious: Yes (Other)
  Sender: FDA-Public Use
  Company Number: 2008S1000045

PATIENT
  Age: 14 Year
  Sex: Male

DRUGS (4)
  1. SORIATANE [Suspect]
     Indication: PSORIASIS
     Dosage: 25 MG; QD; PO; 25 MG; QOD; PO
     Route: 048
     Dates: start: 20070101, end: 20071101
  2. SORIATANE [Suspect]
     Indication: PSORIASIS
     Dosage: 25 MG; QD; PO; 25 MG; QOD; PO
     Route: 048
     Dates: start: 20061201
  3. CLARITIN-D [Concomitant]
  4. PSEUDOEPHEDRINE HCL [Concomitant]

REACTIONS (2)
  - GAIT DISTURBANCE [None]
  - HEPATIC ENZYME INCREASED [None]
